FAERS Safety Report 4681771-6 (Version None)
Quarter: 2005Q2

REPORT INFORMATION
  Report Type: 
  Country: None (occurrence: None)
  Receive Date: 20050602
  Receipt Date: 20050524
  Transmission Date: 20051028
  Serious: Yes (Other)
  Sender: FDA-Public Use
  Company Number: 2005-05-1728

PATIENT
  Sex: Female

DRUGS (1)
  1. CELESTONE SOLUSPAN (BETAMETHASONE SOD POSPHATE/ACET INJECTABLE SUSPENS [Suspect]

REACTIONS (4)
  - DIZZINESS [None]
  - FALL [None]
  - LOSS OF CONSCIOUSNESS [None]
  - SYNCOPE [None]
